FAERS Safety Report 8276207-2 (Version None)
Quarter: 2012Q2

REPORT INFORMATION
  Report Type: 
  Country: None (occurrence: None)
  Receive Date: 20120412
  Receipt Date: 20120405
  Transmission Date: 20120825
  Serious: Yes (Hospitalization, Other)
  Sender: FDA-Public Use
  Company Number: JP-ASTELLAS-2012JP002051

PATIENT
  Sex: Male
  Weight: 92 kg

DRUGS (18)
  1. SOLU-MEDROL [Suspect]
     Indication: GRAFT VERSUS HOST DISEASE
     Dosage: 40 MG, BID
     Route: 041
     Dates: start: 20110618
  2. ALKERAN [Concomitant]
     Indication: BONE MARROW CONDITIONING REGIMEN
     Dosage: 120 MG, UID/QD
     Route: 041
     Dates: start: 20110527, end: 20110529
  3. KYTRIL [Concomitant]
     Dosage: 3 MG, UID/QD
     Route: 041
     Dates: start: 20110527, end: 20110529
  4. PROGRAF [Suspect]
     Indication: PROPHYLAXIS AGAINST GRAFT VERSUS HOST DISEASE
     Dosage: UNK
     Route: 041
     Dates: start: 20110531
  5. METHOTREXATE [Concomitant]
     Dosage: 10 MG, UID/QD
     Route: 041
     Dates: start: 20110604, end: 20110604
  6. NEUTROGIN [Concomitant]
     Indication: NEUTROPHIL COUNT INCREASED
     Dosage: 250 MG, UID/QD
     Route: 041
     Dates: start: 20110606
  7. METHOTREXATE [Concomitant]
     Indication: PROPHYLAXIS AGAINST GRAFT VERSUS HOST DISEASE
     Dosage: 15 MG, UID/QD
     Route: 041
     Dates: start: 20110602, end: 20110602
  8. ZOVIRAX [Concomitant]
     Indication: INFECTION PROPHYLAXIS
     Dosage: 200 MG, QID
     Route: 048
     Dates: start: 20110525
  9. LANSOPRAZOLE [Concomitant]
     Indication: PROPHYLAXIS AGAINST GASTROINTESTINAL ULCER
     Dosage: 15 MG, UID/QD
     Route: 048
     Dates: start: 20110525
  10. VANCOMYCIN [Concomitant]
     Indication: FEBRILE NEUTROPENIA
     Dosage: 1 G, BID
     Route: 041
     Dates: start: 20110609
  11. METHOTREXATE [Concomitant]
     Dosage: 10 MG, UID/QD
     Route: 041
     Dates: start: 20110607, end: 20110607
  12. FOSCAVIR [Concomitant]
     Indication: MYELITIS
     Dosage: 90 MG/KG, BID
     Route: 065
  13. DORIPENEM MONOHYDRATE [Concomitant]
     Indication: FEBRILE NEUTROPENIA
     Dosage: 0.5 G, TID
     Route: 041
     Dates: start: 20110607
  14. VFEND [Concomitant]
     Indication: FEBRILE NEUTROPENIA
     Dosage: 600 MG, BID
     Route: 041
     Dates: start: 20110614
  15. LEVOFLOXACIN [Concomitant]
     Indication: INFECTION PROPHYLAXIS
     Dosage: 500 MG, UID/QD
     Route: 048
     Dates: start: 20110525
  16. URSO 250 [Concomitant]
     Dosage: 600 MG, UNKNOWN/D
     Route: 048
     Dates: start: 20110525
  17. ITRACONAZOLE [Concomitant]
     Indication: INFECTION PROPHYLAXIS
     Dosage: 20 ML, UID/QD
     Route: 048
     Dates: start: 20110525, end: 20110613
  18. ZOSYN [Concomitant]
     Indication: FEBRILE NEUTROPENIA
     Dosage: 2.25 G, TID
     Route: 041
     Dates: start: 20110606, end: 20110607

REACTIONS (4)
  - DRUG INEFFECTIVE [None]
  - GRAFT VERSUS HOST DISEASE IN SKIN [None]
  - GRAFT VERSUS HOST DISEASE IN INTESTINE [None]
  - MYELITIS [None]
